FAERS Safety Report 16425255 (Version 3)
Quarter: 2019Q3

REPORT INFORMATION
  Report Type: Report from Study
  Country: None (occurrence: IE)
  Receive Date: 20190613
  Receipt Date: 20190701
  Transmission Date: 20191004
  Serious: Yes (Other)
  Sender: FDA-Public Use
  Company Number: IE-ABBVIE-19K-229-2814230-00

PATIENT
  Sex: Male

DRUGS (1)
  1. HUMIRA [Suspect]
     Active Substance: ADALIMUMAB
     Indication: CROHN^S DISEASE
     Route: 058
     Dates: start: 20160629, end: 2018

REACTIONS (6)
  - Diarrhoea [Unknown]
  - Crohn^s disease [Unknown]
  - Impaired quality of life [Unknown]
  - Therapeutic product effect incomplete [Unknown]
  - Weight decreased [Unknown]
  - Impaired work ability [Unknown]
